FAERS Safety Report 6851314-7 (Version None)
Quarter: 2010Q3

REPORT INFORMATION
  Report Type: 
  Country: None (occurrence: None)
  Receive Date: 20100717
  Receipt Date: 20080114
  Transmission Date: 20110219
  Serious: No
  Sender: FDA-Public Use
  Company Number: US-PFIZER INC-2008004855

PATIENT
  Sex: Male
  Weight: 95.454 kg

DRUGS (5)
  1. CHANTIX [Suspect]
     Indication: SMOKING CESSATION THERAPY
     Dates: start: 20070101
  2. CELEXA [Concomitant]
  3. TAMSULOSIN HYDROCHLORIDE [Concomitant]
  4. ANALGESICS [Concomitant]
  5. ACETYLSALICYLIC ACID [Concomitant]

REACTIONS (2)
  - ABDOMINAL PAIN UPPER [None]
  - VOMITING [None]
